FAERS Safety Report 11391918 (Version 1)
Quarter: 2015Q3

REPORT INFORMATION
  Report Type: Spontaneous
  Country: US (occurrence: None)
  Receive Date: 20150814
  Receipt Date: 20150814
  Transmission Date: 20151125
  Serious: Yes (Other)
  Sender: FDA-Public Use
  Company Number: None

PATIENT
  Age: 48 Year
  Sex: Female
  Weight: 83.92 kg

DRUGS (4)
  1. GINGER TURMEIC [Concomitant]
  2. TOPIRAMATE 50MG [Suspect]
     Active Substance: TOPIRAMATE
     Indication: SEIZURE
     Dosage: 1 PILL
     Route: 048
     Dates: start: 20120110
  3. TOPIRAMATE 50MG [Suspect]
     Active Substance: TOPIRAMATE
     Indication: MEMORY IMPAIRMENT
     Dosage: 1 PILL
     Route: 048
     Dates: start: 20120110
  4. LAMOTRIGINE 100MG [Suspect]
     Active Substance: LAMOTRIGINE

REACTIONS (4)
  - Logorrhoea [None]
  - Lacrimation increased [None]
  - Abnormal behaviour [None]
  - Obsessive-compulsive personality disorder [None]
